FAERS Safety Report 16957160 (Version 2)
Quarter: 2019Q4

REPORT INFORMATION
  Report Type: Report from Study
  Country: US (occurrence: US)
  Receive Date: 20191024
  Receipt Date: 20191106
  Transmission Date: 20200122
  Serious: Yes (Hospitalization)
  Sender: FDA-Public Use
  Company Number: US-US WORLDMEDS, LLC-USW201910-001926

PATIENT
  Age: 65 Year
  Sex: Male
  Weight: 90.7 kg

DRUGS (15)
  1. RYTARY [Concomitant]
     Active Substance: CARBIDOPA\LEVODOPA
     Route: 048
     Dates: start: 20191008, end: 20191008
  2. TESSALON [Concomitant]
     Active Substance: BENZONATATE
  3. XADAGO [Suspect]
     Active Substance: SAFINAMIDE MESYLATE
     Indication: PARKINSON^S DISEASE
     Route: 048
     Dates: start: 20190927
  4. VITAMIN C [Concomitant]
     Active Substance: ASCORBIC ACID
  5. CO-ENZYME Q-10 [Concomitant]
  6. VITAMIN B12 [Concomitant]
     Active Substance: CYANOCOBALAMIN
  7. VENTOLIN [Concomitant]
     Active Substance: ALBUTEROL SULFATE
     Indication: WHEEZING
     Dosage: 108 (90 BASE), INHALE 2 PUFFS INTO THE LUNGS EVERY 4 (FOUR) HOURS AS NEEDED
  8. ASPIRIN. [Concomitant]
     Active Substance: ASPIRIN
  9. RYTARY [Concomitant]
     Active Substance: CARBIDOPA\LEVODOPA
     Dosage: 36.25-145 MG, 1 CAPSULE BY MOUTH 3 (THREE) TIMES DAILY
  10. DEXILANT [Concomitant]
     Active Substance: DEXLANSOPRAZOLE
  11. ZANTAC [Concomitant]
     Active Substance: RANITIDINE HYDROCHLORIDE
  12. KENALOG [Concomitant]
     Active Substance: TRIAMCINOLONE ACETONIDE
  13. VITAMIN D [Concomitant]
     Active Substance: VITAMIN D NOS
  14. NALOXONE [Concomitant]
     Active Substance: NALOXONE
  15. VENTOLIN [Concomitant]
     Active Substance: ALBUTEROL SULFATE
     Indication: DYSPNOEA

REACTIONS (1)
  - Dysarthria [Recovered/Resolved]

NARRATIVE: CASE EVENT DATE: 20191007
